FAERS Safety Report 9390367 (Version 3)
Quarter: 2014Q1

REPORT INFORMATION
  Report Type: Spontaneous
  Country: US (occurrence: US)
  Receive Date: 20130709
  Receipt Date: 20140221
  Transmission Date: 20141002
  Serious: Yes (Death)
  Sender: FDA-Public Use
  Company Number: US-BRISTOL-MYERS SQUIBB COMPANY-19084128

PATIENT
  Age: 76 Year
  Sex: Male
  Weight: 104.67 kg

DRUGS (29)
  1. BYETTA [Suspect]
     Indication: TYPE 2 DIABETES MELLITUS
     Dosage: 31OCT09-31JAN2012:10MG/2/1/DAY
     Dates: start: 20091031, end: 20120131
  2. IMODIUM [Concomitant]
     Dosage: 1DF:1 MG/7.5ML
  3. VITAMIN B12 [Concomitant]
     Route: 048
  4. NITROGLYCERIN [Concomitant]
     Route: 060
  5. ZOFRAN [Concomitant]
     Indication: NAUSEA
     Route: 048
  6. ZOFRAN [Concomitant]
     Indication: VOMITING
     Route: 048
  7. ATENOLOL [Concomitant]
     Route: 048
  8. CELEXA [Concomitant]
     Route: 048
  9. PANTOPRAZOLE [Concomitant]
     Route: 048
  10. GLUCOTROL XL [Concomitant]
     Route: 048
  11. PRAVASTATIN SODIUM [Concomitant]
     Route: 048
  12. POTASSIUM CHLORIDE [Concomitant]
     Route: 048
  13. GARLIC [Concomitant]
     Route: 048
  14. VITAMIN D [Concomitant]
     Dosage: 1DF:1000 UNITS
     Route: 048
  15. ASPIRIN [Concomitant]
     Route: 048
  16. VITAMIN C [Concomitant]
     Route: 048
  17. PERCOCET [Concomitant]
     Route: 048
  18. LOMOTIL [Concomitant]
     Route: 048
  19. COQ10 [Concomitant]
     Route: 048
  20. DIPHENOXYLATE + ATROPINE [Concomitant]
  21. ENOXAPARIN [Concomitant]
  22. KLOR-CON [Concomitant]
  23. CLONAZEPAM [Concomitant]
  24. KETOROLAC [Concomitant]
  25. CREON [Concomitant]
  26. ONDANSETRON [Concomitant]
  27. OXYCODONE HCL + ACETAMINOPHEN [Concomitant]
  28. COUMADIN [Concomitant]
  29. GLIPIZIDE [Concomitant]

REACTIONS (1)
  - Pancreatic carcinoma [Fatal]
